FAERS Safety Report 9234124 (Version 2)
Quarter: 2013Q2

REPORT INFORMATION
  Report Type: Spontaneous
  Country: KR (occurrence: KR)
  Receive Date: 20130416
  Receipt Date: 20130509
  Transmission Date: 20140414
  Serious: Yes (Hospitalization)
  Sender: FDA-Public Use
  Company Number: KR-ROCHE-1212224

PATIENT
  Age: 55 Year
  Sex: Female

DRUGS (3)
  1. TRASTUZUMAB [Suspect]
     Indication: BREAST CANCER METASTATIC
     Dosage: LOADING DOSE
     Route: 065
     Dates: start: 20110517
  2. TRASTUZUMAB [Suspect]
     Dosage: MAINTENANCE DOSE (MONOTHERAPY)
     Route: 065
     Dates: start: 20111114
  3. PACLITAXEL [Concomitant]
     Route: 065
     Dates: start: 20110517

REACTIONS (1)
  - Recall phenomenon [Recovered/Resolved]
